FAERS Safety Report 24812009 (Version 1)
Quarter: 2025Q1

REPORT INFORMATION
  Report Type: Spontaneous
  Country: US (occurrence: US)
  Receive Date: 20250106
  Receipt Date: 20250106
  Transmission Date: 20250409
  Serious: No
  Sender: BRISTOL-MYERS SQUIBB COMPANY
  Company Number: US-BRISTOL-MYERS SQUIBB COMPANY-2025-001633

PATIENT
  Age: 57 Year
  Sex: Female

DRUGS (1)
  1. ZEPOSIA [Suspect]
     Active Substance: OZANIMOD HYDROCHLORIDE
     Indication: Multiple sclerosis
     Route: 048
     Dates: start: 202411

REACTIONS (8)
  - Back pain [Unknown]
  - Disturbance in attention [Unknown]
  - Hot flush [Unknown]
  - Rash [Unknown]
  - Feeling hot [Unknown]
  - Visual impairment [Unknown]
  - Gait disturbance [Unknown]
  - Insomnia [Unknown]
